FAERS Safety Report 15158926 (Version 3)
Quarter: 2018Q4

REPORT INFORMATION
  Report Type: Report from Study
  Country: None (occurrence: US)
  Receive Date: 20180718
  Receipt Date: 20181115
  Transmission Date: 20190204
  Serious: Yes (Hospitalization, Other)
  Sender: FDA-Public Use
  Company Number: US-ABBVIE-18K-163-2421366-00

PATIENT
  Age: 87 Year
  Sex: Male
  Weight: 61.29 kg

DRUGS (1)
  1. VENCLEXTA [Suspect]
     Active Substance: VENETOCLAX
     Indication: LEUKAEMIA
     Dosage: 400 MILLIGRAM ON MONDAY, WEDNESDAY AND FRIDAY
     Route: 048
     Dates: start: 201703, end: 201809

REACTIONS (13)
  - Fall [Recovered/Resolved]
  - Upper limb fracture [Recovering/Resolving]
  - Drug effect decreased [Unknown]
  - Adverse drug reaction [Unknown]
  - Haemorrhage [Recovered/Resolved]
  - Haemoglobin decreased [Recovered/Resolved]
  - Asthenia [Unknown]
  - Fall [Unknown]
  - Traumatic haemorrhage [Not Recovered/Not Resolved]
  - Fall [Recovered/Resolved]
  - Nausea [Recovered/Resolved]
  - Speech disorder [Not Recovered/Not Resolved]
  - Upper limb fracture [Recovering/Resolving]

NARRATIVE: CASE EVENT DATE: 2018
